FAERS Safety Report 15335709 (Version 2)
Quarter: 2018Q3

REPORT INFORMATION
  Report Type: Spontaneous
  Country: JP (occurrence: JP)
  Receive Date: 20180830
  Receipt Date: 20180904
  Transmission Date: 20181010
  Serious: Yes (Other)
  Sender: FDA-Public Use
  Company Number: PHJP2018JP015683

PATIENT
  Age: 47 Year
  Sex: Female

DRUGS (1)
  1. ZYKADIA [Suspect]
     Active Substance: CERITINIB
     Indication: LUNG NEOPLASM MALIGNANT
     Dosage: 600 MG, QD
     Route: 048
     Dates: start: 201807

REACTIONS (6)
  - Pyrexia [Unknown]
  - Pericarditis [Unknown]
  - Headache [Unknown]
  - Back pain [Unknown]
  - Chest pain [Unknown]
  - Pleurisy [Unknown]

NARRATIVE: CASE EVENT DATE: 201808
